FAERS Safety Report 7521214-8 (Version None)
Quarter: 2011Q2

REPORT INFORMATION
  Report Type: 
  Country: None (occurrence: None)
  Receive Date: 20110603
  Receipt Date: 20101202
  Transmission Date: 20111010
  Serious: Yes (Other)
  Sender: FDA-Public Use
  Company Number: BR-BAYER-2010-000866

PATIENT
  Age: 51 Year
  Sex: Female

DRUGS (2)
  1. INTERFERON BETA-1B [Suspect]
     Dosage: 8 MIU, QOD
     Route: 058
     Dates: start: 20101123, end: 20101127
  2. INTERFERON BETA-1B [Suspect]
     Dosage: UNK
     Route: 058
     Dates: start: 20101202

REACTIONS (3)
  - SYNCOPE [None]
  - VOMITING [None]
  - ERYTHEMA [None]
